FAERS Safety Report 8026166-2 (Version None)
Quarter: 2012Q1

REPORT INFORMATION
  Report Type: 
  Country: None (occurrence: None)
  Receive Date: 20120105
  Receipt Date: 20110207
  Transmission Date: 20120608
  Serious: No
  Sender: FDA-Public Use
  Company Number: US-ABBOTT-11P-163-0703177-00

PATIENT
  Sex: Female
  Weight: 60.382 kg

DRUGS (1)
  1. SYNTHROID [Suspect]
     Indication: HYPOTHYROIDISM
     Dates: start: 20040101

REACTIONS (6)
  - PRODUCT COLOUR ISSUE [None]
  - HEADACHE [None]
  - MIGRAINE [None]
  - PRODUCT MEASURED POTENCY ISSUE [None]
  - TINNITUS [None]
  - PHOTOPHOBIA [None]
